FAERS Safety Report 14611184 (Version 1)
Quarter: 2018Q1

REPORT INFORMATION
  Report Type: Spontaneous
  Country: US (occurrence: US)
  Receive Date: 20180308
  Receipt Date: 20180308
  Transmission Date: 20180509
  Serious: No
  Sender: FDA-Public Use
  Company Number: US-ASTRAZENECA-2011SE55797

PATIENT
  Age: 24959 Day
  Sex: Female
  Weight: 81.6 kg

DRUGS (11)
  1. NEXIUM [Suspect]
     Active Substance: ESOMEPRAZOLE MAGNESIUM
     Indication: GASTROOESOPHAGEAL REFLUX DISEASE
     Dosage: GENERIC 20 MG DAILY
     Route: 048
     Dates: start: 2015
  2. LIPITOR [Concomitant]
     Active Substance: ATORVASTATIN CALCIUM
  3. NEXIUM [Suspect]
     Active Substance: ESOMEPRAZOLE MAGNESIUM
     Indication: DYSPHAGIA
     Route: 048
     Dates: end: 2015
  4. NEXIUM [Suspect]
     Active Substance: ESOMEPRAZOLE MAGNESIUM
     Indication: GASTROOESOPHAGEAL REFLUX DISEASE
     Route: 048
     Dates: end: 2015
  5. PROTONIX [Concomitant]
     Active Substance: PANTOPRAZOLE SODIUM
  6. HCTZ [Concomitant]
     Active Substance: HYDROCHLOROTHIAZIDE
  7. TRADJENTA [Concomitant]
     Active Substance: LINAGLIPTIN
  8. NEXIUM [Suspect]
     Active Substance: ESOMEPRAZOLE MAGNESIUM
     Indication: DYSPHAGIA
     Dosage: GENERIC 20 MG DAILY
     Route: 048
     Dates: start: 2015
  9. ACIPHEX [Concomitant]
     Active Substance: RABEPRAZOLE SODIUM
  10. DIOVAN [Concomitant]
     Active Substance: VALSARTAN
  11. TYLENOL [Concomitant]
     Active Substance: ACETAMINOPHEN

REACTIONS (23)
  - Malaise [Unknown]
  - Intentional product misuse [Unknown]
  - Flatulence [Unknown]
  - Nausea [Unknown]
  - Hypertension [Unknown]
  - Arthritis [Unknown]
  - Drug ineffective [Unknown]
  - Hunger [Unknown]
  - Hernia [Unknown]
  - Anxiety [Unknown]
  - Diarrhoea [Unknown]
  - Drug hypersensitivity [Unknown]
  - Drug effect decreased [Unknown]
  - Product use issue [Unknown]
  - Influenza like illness [Unknown]
  - Weight decreased [Unknown]
  - Gastrointestinal disorder [Unknown]
  - Diabetes mellitus [Unknown]
  - Vomiting [Unknown]
  - Dysphagia [Unknown]
  - Blood cholesterol increased [Unknown]
  - Abdominal distension [Unknown]
  - Bone disorder [Unknown]

NARRATIVE: CASE EVENT DATE: 201712
